FAERS Safety Report 17113385 (Version 1)
Quarter: 2019Q4

REPORT INFORMATION
  Report Type: Spontaneous
  Country: FR (occurrence: FR)
  Receive Date: 20191205
  Receipt Date: 20191205
  Transmission Date: 20200122
  Serious: Yes (Hospitalization)
  Sender: FDA-Public Use
  Company Number: FR-ROCHE-2484683

PATIENT
  Age: 68 Year
  Sex: Female
  Weight: 80.7 kg

DRUGS (10)
  1. ADVAGRAF [Concomitant]
     Active Substance: TACROLIMUS
     Route: 048
     Dates: start: 20190422
  2. LANSOPRAZOLE. [Suspect]
     Active Substance: LANSOPRAZOLE
     Indication: PROPHYLAXIS
     Dosage: ON, 19/JUL/2019, RECEIVED MOST RECENT DOSE OF LANSOPRAZOLE
     Route: 048
     Dates: start: 201904
  3. GALVUS [Concomitant]
     Active Substance: VILDAGLIPTIN
     Route: 048
  4. ESIDREX [Concomitant]
     Active Substance: HYDROCHLOROTHIAZIDE
     Route: 048
     Dates: end: 20190721
  5. ROVALCYTE [Suspect]
     Active Substance: VALGANCICLOVIR HYDROCHLORIDE
     Indication: ANTIVIRAL PROPHYLAXIS
     Dosage: ON 19/JUL/2019, RECEIVED MOST RECENT DOSE OF VALGANCICLOVIR.
     Route: 048
     Dates: start: 20190422
  6. TAHOR [Concomitant]
     Active Substance: ATORVASTATIN CALCIUM
     Route: 048
  7. BACTRIM [Suspect]
     Active Substance: SULFAMETHOXAZOLE\TRIMETHOPRIM
     Indication: ANTIFUNGAL PROPHYLAXIS
     Dosage: ON 19/JUL/2019, RECEIVED MOST RECENT DOSE OF SULFAMETHOXAZOLE/TRIMETHOPRIM.
     Route: 048
     Dates: start: 20190422
  8. CELLCEPT [Suspect]
     Active Substance: MYCOPHENOLATE MOFETIL\MYCOPHENOLATE MOFETIL HYDROCHLORIDE
     Indication: PROPHYLAXIS AGAINST TRANSPLANT REJECTION
     Dosage: ON 23/JUL/2019, RECEIVED MOST RECENT DOSE OF MYCOPHENOLATE MOFETIL.
     Route: 048
     Dates: start: 20190422
  9. CORTANCYL [Concomitant]
     Active Substance: PREDNISONE
     Route: 048
  10. LASILIX SPECIAL [FUROSEMIDE] [Concomitant]
     Active Substance: FUROSEMIDE
     Route: 048

REACTIONS (2)
  - Urinary tract infection [Recovered/Resolved]
  - Neutropenia [Recovered/Resolved]

NARRATIVE: CASE EVENT DATE: 20190719
